FAERS Safety Report 7159279-8 (Version None)
Quarter: 2010Q4

REPORT INFORMATION
  Report Type: 
  Country: None (occurrence: None)
  Receive Date: 20101214
  Receipt Date: 20100803
  Transmission Date: 20110411
  Serious: No
  Sender: FDA-Public Use
  Company Number: US-ASTRAZENECA-2010SE36267

PATIENT
  Age: 698 Month
  Sex: Female
  Weight: 67.6 kg

DRUGS (5)
  1. CRESTOR [Suspect]
     Indication: HYPERCHOLESTEROLAEMIA
     Route: 048
     Dates: start: 20100401
  2. RECAST [Concomitant]
     Indication: OSTEOPOROSIS
  3. VITAMIN D [Concomitant]
     Indication: OSTEOPOROSIS
  4. CALCIUM SUPPLEMENT [Concomitant]
     Indication: OSTEOPOROSIS
  5. PRED FORTE [Concomitant]
     Indication: GLAUCOMA

REACTIONS (2)
  - MUSCLE SPASMS [None]
  - TENDERNESS [None]
